FAERS Safety Report 5137186-X (Version None)
Quarter: 2006Q4

REPORT INFORMATION
  Report Type: 
  Country: None (occurrence: None)
  Receive Date: 20061030
  Receipt Date: 20050912
  Transmission Date: 20070319
  Serious: No
  Sender: FDA-Public Use
  Company Number: US-GLAXOSMITHKLINE-A0573840A

PATIENT
  Age: 62 Year
  Sex: Female

DRUGS (10)
  1. ADVAIR HFA [Suspect]
     Indication: ASTHMA
     Dosage: 1PUFF TWICE PER DAY
     Route: 055
     Dates: start: 20050909
  2. ASPIRIN [Concomitant]
     Dosage: 81MG UNKNOWN
     Route: 065
  3. LOVASTATIN [Concomitant]
  4. THYROID TAB [Concomitant]
  5. FUROSEMIDE [Concomitant]
  6. OMEPRAZOLE [Concomitant]
  7. COMBIVENT [Concomitant]
  8. HUMULIN N [Concomitant]
  9. HUMULIN 70/30 [Concomitant]
  10. BENADRYL [Concomitant]
     Route: 065

REACTIONS (4)
  - DIARRHOEA [None]
  - NAUSEA [None]
  - PHARMACEUTICAL PRODUCT COMPLAINT [None]
  - RETCHING [None]
